FAERS Safety Report 23572572 (Version 1)
Quarter: 2024Q1

REPORT INFORMATION
  Report Type: Spontaneous
  Country: US (occurrence: US)
  Receive Date: 20240227
  Receipt Date: 20240227
  Transmission Date: 20240410
  Serious: No
  Sender: FDA-Public Use
  Company Number: US-AVADEL CNS PHARMACEUTICALS, LLC-2023AVA00382

PATIENT
  Sex: Male
  Weight: 143.76 kg

DRUGS (13)
  1. LUMRYZ [Suspect]
     Active Substance: SODIUM OXYBATE
     Indication: Narcolepsy
     Dosage: 9 G, ONCE NIGHTLY
     Route: 048
     Dates: start: 20231027
  2. ADDERALL XR [Suspect]
     Active Substance: AMPHETAMINE ASPARTATE\AMPHETAMINE SULFATE\DEXTROAMPHETAMINE SACCHARATE\DEXTROAMPHETAMINE SULFATE
     Dosage: UNK ^DURING THE DAYTIME^
     Dates: end: 2023
  3. OCREVUS [Concomitant]
     Active Substance: OCRELIZUMAB
  4. BOTOX [Concomitant]
     Active Substance: ONABOTULINUMTOXINA
  5. BUPROPION [Concomitant]
     Active Substance: BUPROPION
     Dosage: 450 MG, 1X/DAY
  6. PRAMIPEXOLE [Concomitant]
     Active Substance: PRAMIPEXOLE\PRAMIPEXOLE DIHYDROCHLORIDE
     Dosage: 0.5 MG, 1X/DAY BEFORE BEDTIME
  7. MINOXIDIL [Concomitant]
     Active Substance: MINOXIDIL
     Dosage: 2.5 MG, 1X/DAY
  8. NALTREXONE [Concomitant]
     Active Substance: NALTREXONE
     Indication: Weight decreased
     Dosage: 25 MG, 1X/DAY
  9. AMFETAMINE ASPARTATE MONOHYDRATE;AMFETAMINE SULFATE;DEXAMFETAMINE SACC [Concomitant]
     Dosage: 30 MG, 1X/DAY IN THE MORNING
  10. IRON [Concomitant]
     Active Substance: IRON
  11. FINASTERIDE [Concomitant]
     Active Substance: FINASTERIDE
     Dosage: 2.5 MG, 1X/DAY
  12. ESCITALOPRAM [Concomitant]
     Active Substance: ESCITALOPRAM OXALATE
     Dosage: 20 MG, 1X/DAY
  13. BUSPIRONE [Concomitant]
     Active Substance: BUSPIRONE HYDROCHLORIDE
     Dosage: 30 MG, 2X/DAY

REACTIONS (4)
  - Insomnia [Recovered/Resolved]
  - Therapeutic product effect variable [Not Recovered/Not Resolved]
  - Somnolence [Not Recovered/Not Resolved]
  - Product preparation issue [Not Recovered/Not Resolved]

NARRATIVE: CASE EVENT DATE: 20230101
